FAERS Safety Report 15446358 (Version 2)
Quarter: 2018Q4

REPORT INFORMATION
  Report Type: Spontaneous
  Country: JP (occurrence: JP)
  Receive Date: 20180928
  Receipt Date: 20181029
  Transmission Date: 20190204
  Serious: Yes (Other)
  Sender: FDA-Public Use
  Company Number: JP-PFIZER INC-2018387738

PATIENT
  Age: 85 Year
  Sex: Male

DRUGS (1)
  1. CELECOX [Suspect]
     Active Substance: CELECOXIB
     Indication: ARTHRALGIA
     Dosage: 200 MG DAILY
     Route: 048

REACTIONS (2)
  - Cardiac disorder [Unknown]
  - Condition aggravated [Unknown]
